FAERS Safety Report 26140021 (Version 1)
Quarter: 2025Q4

REPORT INFORMATION
  Report Type: Spontaneous
  Country: US (occurrence: None)
  Receive Date: 20251209
  Receipt Date: 20251209
  Transmission Date: 20260117
  Serious: Yes (Hospitalization)
  Sender: FDA-CTU
  Company Number: None

PATIENT
  Age: 82 Year
  Sex: Female
  Weight: 65.77 kg

DRUGS (2)
  1. CALQUENCE [Suspect]
     Active Substance: ACALABRUTINIB
  2. IMBRUVICA [Suspect]
     Active Substance: IBRUTINIB

REACTIONS (9)
  - Platelet count decreased [None]
  - White blood cell count increased [None]
  - Abdominal pain [None]
  - Sensory disturbance [None]
  - Chest pain [None]
  - Seizure [None]
  - Seizure [None]
  - Ischaemic stroke [None]
  - Aphasia [None]

NARRATIVE: CASE EVENT DATE: 20251015
